FAERS Safety Report 20058509 (Version 1)
Quarter: 2021Q4

REPORT INFORMATION
  Report Type: Report from Study
  Country: US (occurrence: US)
  Receive Date: 20211111
  Receipt Date: 20211111
  Transmission Date: 20220303
  Serious: Yes (Hospitalization, Other)
  Sender: FDA-Public Use
  Company Number: US-AMGEN-USACT2021172891

PATIENT
  Age: 69 Year
  Sex: Male
  Weight: 96.3 kg

DRUGS (2)
  1. BLINATUMOMAB [Suspect]
     Active Substance: BLINATUMOMAB
     Indication: B precursor type acute leukaemia
     Dosage: 9 MCG/DAY ON 1-7 DAYS AND 28 MCG/DAY ON 8-28 DAYS (TOTAL DOSE: 651 MCG)
     Route: 042
     Dates: start: 20210706, end: 20210803
  2. METHOTREXATE [Suspect]
     Active Substance: METHOTREXATE
     Indication: B precursor type acute leukaemia
     Dosage: 15 MILLIGRAM/ TOTAL DOSE ADMINISTERED: 45 MG
     Route: 037
     Dates: start: 20210706, end: 20210803

REACTIONS (3)
  - Cerebrovascular accident [Recovered/Resolved]
  - Muscular weakness [Recovering/Resolving]
  - Aphasia [Recovering/Resolving]

NARRATIVE: CASE EVENT DATE: 20210812
